FAERS Safety Report 23307327 (Version 2)
Quarter: 2025Q4

REPORT INFORMATION
  Report Type: Spontaneous
  Country: EU (occurrence: EU)
  Receive Date: 20231218
  Receipt Date: 20251126
  Transmission Date: 20260118
  Serious: Yes (Death, Other)
  Sender: AMGEN
  Company Number: EU-AMGEN-DEUSP2023221874

PATIENT

DRUGS (6)
  1. CARFILZOMIB [Suspect]
     Active Substance: CARFILZOMIB
     Indication: Plasma cell myeloma
     Dosage: 20 MILLIGRAM/SQ. METER, D1/2  IN C1
     Route: 040
  2. CARFILZOMIB [Suspect]
     Active Substance: CARFILZOMIB
     Indication: Off label use
     Dosage: 36 MILLIGRAM/SQ. METER, DAY 8/9, 15/16 AND IN C1 AND THEREAFTER
     Route: 040
  3. LENALIDOMIDE [Suspect]
     Active Substance: LENALIDOMIDE
     Indication: Plasma cell myeloma
     Dosage: 25 MILLIGRAM, (D1-21)
     Route: 048
  4. LENALIDOMIDE [Suspect]
     Active Substance: LENALIDOMIDE
     Dosage: 10 MILLIGRAM, DL-28 OF A 4-WEEK CYCLE
     Route: 048
  5. DEXAMETHASONE [Suspect]
     Active Substance: DEXAMETHASONE
     Indication: Plasma cell myeloma
     Dosage: UNK, 36/40 MG D 1, 8,15, 22
     Route: 065
  6. ELOTUZUMAB [Concomitant]
     Active Substance: ELOTUZUMAB
     Indication: Plasma cell myeloma
     Dosage: 10 MILLIGRAM/KILOGRAM. METER, D 1, 8,15, AND 22 (C1/C2) AND ON D 1 AND 15 (C3-6)/ 20 MG/KG IV ON D1
     Route: 040

REACTIONS (9)
  - Adverse event [Fatal]
  - COVID-19 [Fatal]
  - Infection [Fatal]
  - Acute myeloid leukaemia [Fatal]
  - Cardiac disorder [Fatal]
  - Plasma cell myeloma [Fatal]
  - Febrile neutropenia [Unknown]
  - Pneumonia [Unknown]
  - Off label use [Unknown]
